FAERS Safety Report 8301413-8 (Version None)
Quarter: 2012Q2

REPORT INFORMATION
  Report Type: 
  Country: None (occurrence: None)
  Receive Date: 20120420
  Receipt Date: 20120413
  Transmission Date: 20120825
  Serious: Yes (Hospitalization)
  Sender: FDA-Public Use
  Company Number: DE-UCBSA-031390

PATIENT
  Sex: Female

DRUGS (4)
  1. VIMPAT [Suspect]
     Dosage: DOSE REDUCED
  2. KEPPRA [Suspect]
     Indication: EPILEPSY
     Dosage: DOSE: 1000 ; DAILY DOSE: 2000
     Route: 048
     Dates: start: 20100601
  3. VIMPAT [Suspect]
     Indication: CONVULSION
     Route: 048
     Dates: start: 20101101, end: 20101201
  4. LAMOTRGINE [Concomitant]

REACTIONS (4)
  - DRUG INEFFECTIVE [None]
  - ANAEMIA [None]
  - EATING DISORDER [None]
  - FATIGUE [None]
